FAERS Safety Report 6047824-5 (Version None)
Quarter: 2009Q1

REPORT INFORMATION
  Report Type: 
  Country: None (occurrence: None)
  Receive Date: 20090123
  Receipt Date: 20060102
  Transmission Date: 20090719
  Serious: Yes (Other)
  Sender: FDA-Public Use
  Company Number: US-PFIZER INC-2007039077

PATIENT
  Sex: Female
  Weight: 44.91 kg

DRUGS (2)
  1. LIPITOR [Suspect]
     Dosage: 20 MG, 1X/DAY
  2. ZITHROMAX [Suspect]

REACTIONS (2)
  - HEART VALVE STENOSIS [None]
  - MUSCLE SPASMS [None]
